FAERS Safety Report 20670605 (Version 1)
Quarter: 2022Q2

REPORT INFORMATION
  Report Type: Other
  Country: None (occurrence: TW)
  Receive Date: 20220404
  Receipt Date: 20220404
  Transmission Date: 20220721
  Serious: Yes (Hospitalization)
  Sender: FDA-Public Use
  Company Number: TW-B.Braun Medical Inc.-2127375

PATIENT
  Age: 28 Year
  Sex: Male

DRUGS (1)
  1. METRONIDAZOLE [Suspect]
     Active Substance: METRONIDAZOLE

REACTIONS (1)
  - Drug ineffective [Recovered/Resolved]
